FAERS Safety Report 5751268-0 (Version None)
Quarter: 2008Q2

REPORT INFORMATION
  Report Type: 
  Country: None (occurrence: None)
  Receive Date: 20080528
  Receipt Date: 20080517
  Transmission Date: 20081010
  Serious: Yes (Other)
  Sender: FDA-Public Use
  Company Number: BR-PFIZER INC-2007061049

PATIENT
  Sex: Male

DRUGS (7)
  1. DETRUSITOL LA [Suspect]
     Indication: POLLAKIURIA
     Route: 048
  2. EUTHYROX [Concomitant]
     Route: 048
  3. LISINOPRIL [Concomitant]
  4. TEGRETOL [Concomitant]
     Dates: start: 19950101
  5. RIVOTRIL [Concomitant]
     Route: 048
     Dates: start: 19970101
  6. SIMVASTATIN [Concomitant]
     Indication: CARDIOVASCULAR EVENT PROPHYLAXIS
     Route: 048
  7. CHEMOTHERAPY NOS [Concomitant]

REACTIONS (3)
  - DRUG INEFFECTIVE [None]
  - POLLAKIURIA [None]
  - PROSTATE CANCER [None]
